FAERS Safety Report 6068663-5 (Version None)
Quarter: 2009Q1

REPORT INFORMATION
  Report Type: 
  Country: None (occurrence: None)
  Receive Date: 20090206
  Receipt Date: 20090202
  Transmission Date: 20090719
  Serious: Yes (Disabling)
  Sender: FDA-Public Use
  Company Number: A0766139A

PATIENT
  Age: 45 Year
  Sex: Male

DRUGS (1)
  1. PARNATE [Suspect]
     Indication: DEPRESSION
     Dosage: 30MG IN THE MORNING
     Route: 048

REACTIONS (6)
  - BRUXISM [None]
  - CHILLS [None]
  - HYPOTHERMIA [None]
  - MYOCLONUS [None]
  - POOR QUALITY SLEEP [None]
  - SEDATION [None]
